FAERS Safety Report 5873763-6 (Version None)
Quarter: 2008Q3

REPORT INFORMATION
  Report Type: 
  Country: None (occurrence: None)
  Receive Date: 20080908
  Receipt Date: 20080828
  Transmission Date: 20090109
  Serious: Yes (Other)
  Sender: FDA-Public Use
  Company Number: US-ROCHE-552219

PATIENT
  Sex: Male
  Weight: 56.7 kg

DRUGS (2)
  1. ACCUTANE [Suspect]
     Indication: ACNE
     Route: 065
     Dates: start: 19980101, end: 19980323
  2. ACCUTANE [Suspect]
     Dosage: PATIENT TOOK ACCUATNE FOR A FEW MONTHS IN 1997.
     Route: 065
     Dates: start: 19970101, end: 19970101

REACTIONS (11)
  - ANXIETY [None]
  - APPENDICECTOMY [None]
  - CHRONIC SINUSITIS [None]
  - COLECTOMY [None]
  - COLITIS ULCERATIVE [None]
  - DEPRESSION [None]
  - EPIDIDYMITIS [None]
  - ILEOSTOMY [None]
  - INFLAMMATORY BOWEL DISEASE [None]
  - INSOMNIA [None]
  - PROSTATITIS [None]
